FAERS Safety Report 8763907 (Version 1)
Quarter: 2012Q4

REPORT INFORMATION
  Report Type: 
  Country: US (occurrence: US)
  Receive Date: 20120829
  Receipt Date: 20120829
  Transmission Date: 20130627
  Serious: Yes (Hospitalization)
  Sender: FDA-Public Use
  Company Number: US-ELI_LILLY_AND_COMPANY-US201208007177

PATIENT
  Sex: Female

DRUGS (23)
  1. FORTEO [Suspect]
     Indication: OSTEOPOROSIS
     Dosage: 20 ug, qd
     Dates: start: 20120730
  2. FORTEO [Suspect]
     Dosage: 20 ug, qd
     Dates: start: 2003, end: 2005
  3. ACIPHEX [Concomitant]
  4. BACTRIM DS [Concomitant]
  5. CELLCEPT [Concomitant]
  6. CYCLOSPORIN [Concomitant]
  7. ATENOLOL [Concomitant]
  8. RESTASIS [Concomitant]
  9. FUROSEMIDE [Concomitant]
  10. FERROUS SULFATE [Concomitant]
  11. ALPRAZOLAM [Concomitant]
  12. DIPHENOXYLATE/ATROPINE [Concomitant]
  13. LAMISIL [Concomitant]
  14. PREDNISONE [Concomitant]
  15. SIMVASTATIN [Concomitant]
  16. LOSARTAN [Concomitant]
  17. ATROVENT [Concomitant]
  18. ALLOPURINOL [Concomitant]
  19. MULTIVITAMIN [Concomitant]
  20. VITAMIN D [Concomitant]
  21. CITRACAL + D [Concomitant]
  22. TYLENOL WITH CODEINE NO.3 [Concomitant]
  23. PROCRIT [Concomitant]

REACTIONS (3)
  - Compression fracture [Unknown]
  - Compression fracture [Unknown]
  - Off label use [Unknown]
